FAERS Safety Report 14111260 (Version 2)
Quarter: 2017Q4

REPORT INFORMATION
  Report Type: Spontaneous
  Country: TR (occurrence: TR)
  Receive Date: 20171020
  Receipt Date: 20171126
  Transmission Date: 20180321
  Serious: Yes (Hospitalization)
  Sender: FDA-Public Use
  Company Number: TR-CELGENEUS-TUR-20171003542

PATIENT
  Age: 64 Year
  Sex: Female

DRUGS (5)
  1. REVLIMID [Suspect]
     Active Substance: LENALIDOMIDE
     Indication: PLASMA CELL MYELOMA
     Route: 048
     Dates: start: 20140521, end: 20170314
  2. RELPAX [Concomitant]
     Active Substance: ELETRIPTAN HYDROBROMIDE
     Indication: MIGRAINE
     Dosage: 11 GRAM
     Route: 065
     Dates: start: 2015
  3. POMALIDOMIDE [Suspect]
     Active Substance: POMALIDOMIDE
     Indication: PLASMA CELL MYELOMA
     Dosage: 4 MILLIGRAM
     Route: 048
     Dates: start: 20170315
  4. BEKUNIS [Concomitant]
     Indication: CONSTIPATION
     Dosage: 11 GRAM
     Route: 065
     Dates: start: 20170516
  5. DEXAMETHASONE. [Concomitant]
     Active Substance: DEXAMETHASONE
     Indication: PLASMA CELL MYELOMA
     Dosage: 20-40MG
     Route: 065
     Dates: start: 20170315

REACTIONS (1)
  - Adenocarcinoma of colon [Recovered/Resolved with Sequelae]

NARRATIVE: CASE EVENT DATE: 20170919
